FAERS Safety Report 6404725-8 (Version None)
Quarter: 2009Q4

REPORT INFORMATION
  Report Type: 
  Country: None (occurrence: None)
  Receive Date: 20091016
  Receipt Date: 20091006
  Transmission Date: 20100525
  Serious: Yes (Other)
  Sender: FDA-Public Use
  Company Number: US-SANOFI-SYNTHELABO-A03200603659

PATIENT
  Age: 18 Year
  Sex: Female

DRUGS (2)
  1. AMBIEN [Suspect]
     Indication: DRUG USE FOR UNKNOWN INDICATION
     Dosage: WAS GIVEN ZOLPIDEM WITH ALCOHOL
     Route: 048
     Dates: start: 20040801
  2. ALCOHOL [Suspect]
     Indication: DRUG USE FOR UNKNOWN INDICATION
     Route: 048
     Dates: start: 20040801

REACTIONS (3)
  - INCOHERENT [None]
  - INTENTIONAL DRUG MISUSE [None]
  - VICTIM OF SEXUAL ABUSE [None]
